FAERS Safety Report 11380606 (Version 2)
Quarter: 2016Q3

REPORT INFORMATION
  Report Type: Spontaneous
  Country: US (occurrence: US)
  Receive Date: 20150814
  Receipt Date: 20160907
  Transmission Date: 20161109
  Serious: Yes (Other)
  Sender: FDA-Public Use
  Company Number: US-JNJFOC-20150712885

PATIENT
  Sex: Female

DRUGS (4)
  1. LEVAQUIN [Suspect]
     Active Substance: LEVOFLOXACIN
     Indication: CHLAMYDIAL INFECTION
     Route: 048
     Dates: start: 20071212, end: 20071224
  2. FLAGYL [Concomitant]
     Active Substance: METRONIDAZOLE\METRONIDAZOLE HYDROCHLORIDE
     Indication: CHLAMYDIAL INFECTION
     Route: 065
     Dates: start: 20071210, end: 20071224
  3. LEVAQUIN [Suspect]
     Active Substance: LEVOFLOXACIN
     Indication: VAGINAL INFECTION
     Route: 048
     Dates: start: 20071212, end: 20071224
  4. FLAGYL [Concomitant]
     Active Substance: METRONIDAZOLE\METRONIDAZOLE HYDROCHLORIDE
     Indication: VAGINAL INFECTION
     Route: 065
     Dates: start: 20071210, end: 20071224

REACTIONS (5)
  - Panic attack [Unknown]
  - Fibromyalgia [Unknown]
  - Depression [Unknown]
  - Neuropathy peripheral [Not Recovered/Not Resolved]
  - Anxiety [Unknown]

NARRATIVE: CASE EVENT DATE: 2007
